FAERS Safety Report 17787188 (Version 1)
Quarter: 2020Q2

REPORT INFORMATION
  Report Type: Report from Study
  Country: BR (occurrence: BR)
  Receive Date: 20200514
  Receipt Date: 20200514
  Transmission Date: 20200714
  Serious: Yes (Death, Hospitalization, Other)
  Sender: FDA-Public Use
  Company Number: NVSC2020BR130978

PATIENT
  Age: 52 Year
  Sex: Female

DRUGS (1)
  1. COSENTYX [Suspect]
     Active Substance: SECUKINUMAB
     Indication: PRODUCT USED FOR UNKNOWN INDICATION
     Dosage: UNK
     Route: 065
     Dates: start: 201906

REACTIONS (5)
  - Ankylosing spondylitis [Fatal]
  - Lung disorder [Fatal]
  - Tuberculosis [Unknown]
  - Decreased immune responsiveness [Unknown]
  - Malaise [Unknown]

NARRATIVE: CASE EVENT DATE: 20190704
